FAERS Safety Report 8090731-7 (Version None)
Quarter: 2012Q1

REPORT INFORMATION
  Report Type: 
  Country: None (occurrence: None)
  Receive Date: 20120124
  Receipt Date: 20120109
  Transmission Date: 20120608
  Serious: Yes (Death)
  Sender: FDA-Public Use
  Company Number: EU-2012-10007

PATIENT
  Sex: Female
  Weight: 66 kg

DRUGS (9)
  1. SAMSCA [Suspect]
     Indication: NEOPLASM
     Dosage: 7.5 MG MILLIGRAM(S), DAILY DOSE, ORAL
     Route: 048
     Dates: start: 20111118, end: 20111201
  2. SAMSCA [Suspect]
     Indication: HYPONATRAEMIA
     Dosage: 7.5 MG MILLIGRAM(S), DAILY DOSE, ORAL
     Route: 048
     Dates: start: 20111118, end: 20111201
  3. SAMSCA [Suspect]
     Indication: INAPPROPRIATE ANTIDIURETIC HORMONE SECRETION
     Dosage: 7.5 MG MILLIGRAM(S), DAILY DOSE, ORAL
     Route: 048
     Dates: start: 20111118, end: 20111201
  4. GABAPENTIN [Concomitant]
  5. POTASSIUM CHLORIDE [Concomitant]
  6. DEXAMETHASONE SODIUM POSPHATE [Concomitant]
  7. TOVIAZ [Concomitant]
  8. AVELOX [Concomitant]
  9. LEVOTHYROXINE SODIUM [Concomitant]

REACTIONS (1)
  - WRONG TECHNIQUE IN DRUG USAGE PROCESS [None]
